FAERS Safety Report 9281931 (Version 2)
Quarter: 2013Q3

REPORT INFORMATION
  Report Type: Spontaneous
  Country: US (occurrence: US)
  Receive Date: 20130510
  Receipt Date: 20130802
  Transmission Date: 20140515
  Serious: No
  Sender: FDA-Public Use
  Company Number: US-009507513-1305USA005138

PATIENT
  Age: 57 Year
  Sex: Female
  Weight: 81.63 kg

DRUGS (7)
  1. VICTRELIS [Suspect]
     Indication: HEPATITIS C
     Dosage: 800 MG(4 CAPUSLES), TID
     Route: 048
     Dates: start: 201210
  2. RIBASPHERE [Suspect]
  3. PEGASYS [Suspect]
  4. PREMARIN [Concomitant]
  5. TRIAMCINOLONE [Concomitant]
  6. TYLENOL [Concomitant]
  7. BENADRYL [Concomitant]

REACTIONS (7)
  - Rash pruritic [Unknown]
  - Burning sensation [Unknown]
  - Contusion [Not Recovered/Not Resolved]
  - White blood cell count decreased [Recovered/Resolved]
  - Pain [Unknown]
  - Haemoglobin decreased [Recovered/Resolved]
  - Red blood cell count decreased [Unknown]
